FAERS Safety Report 13346421 (Version 1)
Quarter: 2017Q1

REPORT INFORMATION
  Report Type: Spontaneous
  Country: US (occurrence: US)
  Receive Date: 20170317
  Receipt Date: 20170317
  Transmission Date: 20170428
  Serious: Yes (Life-Threatening, Hospitalization)
  Sender: FDA-Public Use
  Company Number: None

PATIENT
  Age: 72 Year
  Sex: Female
  Weight: 65.8 kg

DRUGS (8)
  1. MK-3475 (PEMBROLIZUMAB) 200MG IV [Suspect]
     Active Substance: PEMBROLIZUMAB
     Indication: OVARIAN CANCER
     Route: 042
     Dates: start: 20170111, end: 20170303
  2. LOSARTAN. [Concomitant]
     Active Substance: LOSARTAN
  3. METOPROLOL. [Concomitant]
     Active Substance: METOPROLOL
  4. SPIRONOLACTONE. [Concomitant]
     Active Substance: SPIRONOLACTONE
  5. CLONIDINE. [Concomitant]
     Active Substance: CLONIDINE
  6. NEXIUM [Concomitant]
     Active Substance: ESOMEPRAZOLE MAGNESIUM
  7. NEURONTIN [Concomitant]
     Active Substance: GABAPENTIN
  8. INSULIN [Concomitant]
     Active Substance: INSULIN NOS

REACTIONS (10)
  - Atrial fibrillation [None]
  - Dizziness [None]
  - Acute respiratory failure [None]
  - Hypomagnesaemia [None]
  - Chills [None]
  - Pulmonary oedema [None]
  - Cardiac failure congestive [None]
  - Tachycardia [None]
  - Acute lung injury [None]
  - Acute respiratory distress syndrome [None]

NARRATIVE: CASE EVENT DATE: 20170310
